FAERS Safety Report 14336960 (Version 1)
Quarter: 2017Q4

REPORT INFORMATION
  Report Type: Spontaneous
  Country: US (occurrence: US)
  Receive Date: 20171228
  Receipt Date: 20171228
  Transmission Date: 20180321
  Serious: No
  Sender: FDA-Public Use
  Company Number: None

PATIENT
  Age: 54 Year
  Sex: Female
  Weight: 80.97 kg

DRUGS (1)
  1. VARUBI [Suspect]
     Active Substance: ROLAPITANT
     Indication: PROPHYLAXIS OF NAUSEA AND VOMITING
     Route: 041

REACTIONS (6)
  - Gastric disorder [None]
  - Oxygen saturation decreased [None]
  - Infusion related reaction [None]
  - Dyspnoea [None]
  - Flushing [None]
  - Back pain [None]

NARRATIVE: CASE EVENT DATE: 20171221
